FAERS Safety Report 8890522 (Version 1)
Quarter: 2012Q4

REPORT INFORMATION
  Report Type: 
  Country: US (occurrence: US)
  Receive Date: 20121106
  Receipt Date: 20121106
  Transmission Date: 20130627
  Serious: Yes (Other)
  Sender: FDA-Public Use
  Company Number: US-WATSON-2012-18981

PATIENT
  Age: 22 Year
  Sex: Male

DRUGS (1)
  1. HYDROXOCOBALAMIN [Suspect]
     Indication: BLOOD CYANIDE INCREASED
     Dosage: 5 g, single
     Route: 042

REACTIONS (2)
  - Device interaction [Not Recovered/Not Resolved]
  - Haemodialysis complication [Not Recovered/Not Resolved]
